FAERS Safety Report 20737184 (Version 2)
Quarter: 2022Q2

REPORT INFORMATION
  Report Type: Spontaneous
  Country: TR (occurrence: TR)
  Receive Date: 20220421
  Receipt Date: 20220426
  Transmission Date: 20220720
  Serious: Yes (Life-Threatening, Hospitalization, Other)
  Sender: FDA-Public Use
  Company Number: TR-BAUSCH-BL-2022-009718

PATIENT
  Age: 13 Month
  Sex: Male

DRUGS (1)
  1. WELLBUTRIN XL [Suspect]
     Active Substance: BUPROPION HYDROCHLORIDE
     Indication: Product used for unknown indication
     Dosage: 87.5 MG/KG,
     Route: 048

REACTIONS (14)
  - Lip disorder [Recovered/Resolved]
  - Tachypnoea [Recovered/Resolved]
  - Status epilepticus [Recovered/Resolved]
  - Hypopnoea [Recovered/Resolved]
  - Electrocardiogram QT prolonged [Recovered/Resolved]
  - Lethargy [Recovered/Resolved]
  - Mydriasis [Recovered/Resolved]
  - Dry mouth [Recovered/Resolved]
  - Tachycardia [Recovered/Resolved]
  - Clonic convulsion [Recovered/Resolved]
  - Generalised tonic-clonic seizure [Recovered/Resolved]
  - Partial seizures [Recovered/Resolved]
  - Toxicity to various agents [Unknown]
  - Overdose [Unknown]
